FAERS Safety Report 8959491 (Version 2)
Quarter: 2013Q1

REPORT INFORMATION
  Report Type: Spontaneous
  Country: CA (occurrence: CA)
  Receive Date: 20121212
  Receipt Date: 20130118
  Transmission Date: 20140127
  Serious: Yes (Hospitalization)
  Sender: FDA-Public Use
  Company Number: CA-AMGEN-CANSP2012042250

PATIENT
  Age: 75 Year
  Sex: Female
  Weight: 77.1 kg

DRUGS (12)
  1. ENBREL [Suspect]
     Indication: RHEUMATOID ARTHRITIS
     Dosage: 50 MG, QWK
     Route: 058
     Dates: start: 20091109, end: 20121025
  2. METOPROLOL [Concomitant]
     Dosage: 15 MG, UNK
  3. SIMVASTATIN [Concomitant]
     Dosage: 20 MG, UNK
  4. RABEPRAZOLE [Concomitant]
     Dosage: 20 MG, UNK
  5. COZAAR [Concomitant]
     Dosage: 50 MG, UNK
  6. ADALAT [Concomitant]
     Indication: HYPERTENSION
     Dosage: 60 MG, QD
     Route: 048
  7. SEROQUEL [Concomitant]
     Indication: SLEEP DISORDER
     Dosage: 150 MG, QHS
     Route: 048
  8. ACTONEL [Concomitant]
     Indication: OSTEOPOROSIS
     Dosage: 35 MG, QD
     Route: 048
  9. HYDROCHLOROTHIAZIDE [Concomitant]
     Indication: HYPERTENSION
     Dosage: 12 MG, QD
     Route: 048
  10. RAMIPRIL [Concomitant]
     Indication: HYPERTENSION
     Dosage: 10 MG, QD
     Route: 048
  11. LOSARTAN [Concomitant]
     Indication: HYPERLIPIDAEMIA
     Dosage: 50 MG, QD
     Route: 048
  12. ASA [Concomitant]
     Indication: CARDIAC DISORDER
     Dosage: 81 MG, QD
     Route: 048

REACTIONS (5)
  - Procedural pain [Recovering/Resolving]
  - Limb reconstructive surgery [Recovered/Resolved]
  - Rheumatoid arthritis [Not Recovered/Not Resolved]
  - Limb operation [Recovered/Resolved]
  - Rash generalised [Recovered/Resolved]
